FAERS Safety Report 6623577-4 (Version None)
Quarter: 2010Q1

REPORT INFORMATION
  Report Type: 
  Country: None (occurrence: None)
  Receive Date: 20100310
  Receipt Date: 20100225
  Transmission Date: 20100710
  Serious: Yes (Other)
  Sender: FDA-Public Use
  Company Number: US-PFIZER INC-2010025092

PATIENT

DRUGS (1)
  1. LYRICA [Suspect]
     Dosage: 150 MG, 3X/DAY

REACTIONS (1)
  - FALL [None]
